FAERS Safety Report 14759589 (Version 1)
Quarter: 2018Q2

REPORT INFORMATION
  Report Type: Spontaneous
  Country: IT (occurrence: IT)
  Receive Date: 20180413
  Receipt Date: 20180413
  Transmission Date: 20180711
  Serious: Yes (Hospitalization, Other)
  Sender: FDA-Public Use
  Company Number: PHHY2018IT062984

PATIENT
  Age: 15 Year
  Sex: Female

DRUGS (4)
  1. CELECOXIB. [Suspect]
     Active Substance: CELECOXIB
     Indication: PRODUCT USED FOR UNKNOWN INDICATION
     Dosage: DPT:  4.7 MG/KG FOR A CUMULATIVE DOSE OF 235 MG
     Route: 065
  2. PIROXICAM. [Suspect]
     Active Substance: PIROXICAM
     Indication: PRODUCT USED FOR UNKNOWN INDICATION
     Dosage: 36 MG, UNK
     Route: 065
  3. IBUPROFENO [Suspect]
     Active Substance: IBUPROFEN
     Indication: PYREXIA
     Dosage: MAXIMUM DOSE: 752 MG
     Route: 065
  4. IBUPROFENO [Suspect]
     Active Substance: IBUPROFEN
     Dosage: DPT: MAXIMUM DOSE 752MG
     Route: 065

REACTIONS (2)
  - Hypersensitivity [Recovered/Resolved]
  - Drug hypersensitivity [Unknown]
